FAERS Safety Report 6328923-7 (Version None)
Quarter: 2009Q3

REPORT INFORMATION
  Report Type: 
  Country: None (occurrence: None)
  Receive Date: 20090826
  Receipt Date: 20090817
  Transmission Date: 20100115
  Serious: Yes (Hospitalization)
  Sender: FDA-Public Use
  Company Number: FR-JNJFOC-20090805292

PATIENT
  Sex: Male

DRUGS (4)
  1. HALDOL [Suspect]
     Indication: INSOMNIA
     Route: 065
  2. ATARAX [Suspect]
     Indication: DRUG WITHDRAWAL SYNDROME
     Route: 048
  3. DEROXAT [Concomitant]
     Indication: DEPRESSION
     Route: 048
  4. XANAX [Concomitant]
     Indication: ANXIETY
     Route: 048

REACTIONS (3)
  - ANTICHOLINERGIC SYNDROME [None]
  - EXTRAPYRAMIDAL DISORDER [None]
  - PRURITUS GENERALISED [None]
